FAERS Safety Report 18345484 (Version 1)
Quarter: 2020Q4

REPORT INFORMATION
  Report Type: Other
  Country: FR (occurrence: FR)
  Receive Date: 20201005
  Receipt Date: 20201005
  Transmission Date: 20210114
  Serious: Yes (Life-Threatening, Other)
  Sender: FDA-Public Use
  Company Number: FR-VALIDUS PHARMACEUTICALS LLC-FR-2020VAL000796

PATIENT

DRUGS (3)
  1. FUROSEMIDE. [Suspect]
     Active Substance: FUROSEMIDE
     Indication: LUNG DISORDER
     Dosage: 20 MG, QD
     Route: 042
     Dates: start: 20200511, end: 20200512
  2. GENTAMICIN SULFATE. [Suspect]
     Active Substance: GENTAMICIN SULFATE
     Indication: PYREXIA
     Dosage: UNK
     Route: 042
     Dates: start: 20200516, end: 20200518
  3. FUROSEMIDE. [Suspect]
     Active Substance: FUROSEMIDE
     Indication: ACUTE KIDNEY INJURY
     Dosage: 40 MG, QD
     Route: 042
     Dates: start: 20200528, end: 20200529

REACTIONS (1)
  - Deafness [Recovered/Resolved with Sequelae]

NARRATIVE: CASE EVENT DATE: 202005
